FAERS Safety Report 26174169 (Version 2)
Quarter: 2025Q4

REPORT INFORMATION
  Report Type: Spontaneous
  Country: EU (occurrence: EU)
  Receive Date: 20251218
  Receipt Date: 20251225
  Transmission Date: 20260117
  Serious: Yes (Other)
  Sender: AMGEN
  Company Number: EU-AMGEN-BELSP2025248545

PATIENT
  Sex: Male

DRUGS (1)
  1. OTEZLA [Suspect]
     Active Substance: APREMILAST
     Indication: Product used for unknown indication
     Dosage: UNK
     Route: 048

REACTIONS (1)
  - Prostate cancer [Unknown]
